FAERS Safety Report 11789852 (Version 1)
Quarter: 2015Q4

REPORT INFORMATION
  Report Type: Report from Study
  Country: DE (occurrence: DE)
  Receive Date: 20151201
  Receipt Date: 20151201
  Transmission Date: 20160305
  Serious: Yes (Disabling, Other)
  Sender: FDA-Public Use
  Company Number: PHHY2015DE081924

PATIENT
  Age: 48 Year
  Sex: Female
  Weight: 60 kg

DRUGS (5)
  1. LDK378 [Suspect]
     Active Substance: CERITINIB
     Indication: NON-SMALL CELL LUNG CANCER
     Dosage: 750 MG, QD
     Route: 048
     Dates: start: 20150626, end: 20150702
  2. XALKORI [Suspect]
     Active Substance: CRIZOTINIB
     Indication: NON-SMALL CELL LUNG CANCER
     Dosage: UNK
     Route: 048
     Dates: start: 20141215, end: 201412
  3. LDK378 [Suspect]
     Active Substance: CERITINIB
     Dosage: 450 MG, QD
     Route: 048
     Dates: end: 20151126
  4. LDK378 [Suspect]
     Active Substance: CERITINIB
     Dosage: 600 MG, QD (4 CAPSULES PER DAY)
     Route: 048
     Dates: start: 20150705, end: 20150731
  5. XALKORI [Suspect]
     Active Substance: CRIZOTINIB
     Dosage: 400 MG, QD (2 X 200 MG)
     Route: 048
     Dates: start: 201501, end: 20150616

REACTIONS (10)
  - Dyspnoea exertional [Unknown]
  - Blood creatinine increased [Recovered/Resolved]
  - Cardiac failure [Not Recovered/Not Resolved]
  - Diarrhoea [Recovered/Resolved]
  - Extrasystoles [Unknown]
  - Bradycardia [Not Recovered/Not Resolved]
  - Abdominal pain [Recovering/Resolving]
  - Nausea [Recovering/Resolving]
  - Renal failure [Recovered/Resolved]
  - Electrocardiogram QT prolonged [Recovered/Resolved]

NARRATIVE: CASE EVENT DATE: 201501
